FAERS Safety Report 18605029 (Version 1)
Quarter: 2020Q4

REPORT INFORMATION
  Report Type: Spontaneous
  Country: US (occurrence: US)
  Receive Date: 20201211
  Receipt Date: 20201211
  Transmission Date: 20210114
  Serious: Yes (Other)
  Sender: FDA-Public Use
  Company Number: None

PATIENT
  Age: 51 Year
  Sex: Female

DRUGS (5)
  1. VITAMIN D2 [Concomitant]
     Active Substance: ERGOCALCIFEROL
  2. MILK THISTLE 175 MG [Concomitant]
  3. PIFELTRO [Suspect]
     Active Substance: DORAVIRINE
     Indication: HIV INFECTION
     Route: 048
     Dates: start: 20200122
  4. ISENTRESS [Suspect]
     Active Substance: RALTEGRAVIR POTASSIUM
     Indication: HIV INFECTION
     Route: 048
     Dates: start: 20200122
  5. ACYCLOVIR 400 MG [Concomitant]
     Active Substance: ACYCLOVIR

REACTIONS (4)
  - Weight increased [None]
  - Pain [None]
  - Rash [None]
  - Therapy change [None]

NARRATIVE: CASE EVENT DATE: 20200122
